FAERS Safety Report 4566870-1 (Version None)
Quarter: 2005Q1

REPORT INFORMATION
  Report Type: 
  Country: None (occurrence: None)
  Receive Date: 20050201
  Receipt Date: 20020418
  Transmission Date: 20050727
  Serious: Yes (Other)
  Sender: FDA-Public Use
  Company Number: US-BRISTOL-MYERS SQUIBB COMPANY-11842473

PATIENT
  Age: 29 Year
  Sex: Female

DRUGS (9)
  1. STADOL [Suspect]
     Route: 045
     Dates: start: 19970401, end: 20010831
  2. OXYCODONE HCL + ACETAMINOPHEN [Concomitant]
  3. CARISOPRODOL [Concomitant]
  4. PROPOXYPHENE NAPSYLATE [Concomitant]
  5. AMITRIPTYLINE [Concomitant]
  6. LITHIUM [Concomitant]
  7. NEURONTIN [Concomitant]
  8. PROMETHAZINE [Concomitant]
  9. ALPRAZOLAM [Concomitant]

REACTIONS (1)
  - DEPENDENCE [None]
